FAERS Safety Report 8863409 (Version 3)
Quarter: 2012Q4

REPORT INFORMATION
  Report Type: 
  Country: US (occurrence: US)
  Receive Date: 20121024
  Receipt Date: 20121226
  Transmission Date: 20130627
  Serious: Yes (Other)
  Sender: FDA-Public Use
  Company Number: US-PERRIGO-12US009027

PATIENT
  Age: 7 Year
  Sex: Female
  Weight: 25.4 kg

DRUGS (1)
  1. DIPHENHYDRAMINE HYDROCHLORIDE [Suspect]
     Indication: NASAL CONGESTION
     Dosage: 10 ml, single
     Route: 048
     Dates: start: 20121012, end: 20121012

REACTIONS (9)
  - Convulsion [Recovered/Resolved]
  - Condition aggravated [Recovered/Resolved]
  - Unresponsive to stimuli [Recovered/Resolved]
  - Aphasia [Recovered/Resolved]
  - Dysarthria [Recovered/Resolved]
  - Mydriasis [Recovered/Resolved]
  - Drooling [Recovered/Resolved]
  - Muscle twitching [Recovered/Resolved]
  - Foaming at mouth [Recovered/Resolved]
